FAERS Safety Report 6652402-0 (Version None)
Quarter: 2010Q1

REPORT INFORMATION
  Report Type: 
  Country: None (occurrence: None)
  Receive Date: 20100323
  Receipt Date: 20100303
  Transmission Date: 20100710
  Serious: Yes (Disabling)
  Sender: FDA-Public Use
  Company Number: 2010-0484

PATIENT
  Sex: Female

DRUGS (3)
  1. DYSPORT [Suspect]
     Indication: SKIN WRINKLING
     Dosage: 300 UNITS (300 UNITS, SINGLE CYCLE), SINGLE CYCLE, SINGLE CYCLE
     Dates: start: 20090901, end: 20090901
  2. DYSPORT [Suspect]
     Indication: SKIN WRINKLING
     Dosage: 300 UNITS (300 UNITS, SINGLE CYCLE), SINGLE CYCLE, SINGLE CYCLE
     Dates: start: 20100127, end: 20100127
  3. DYSPORT [Suspect]
     Indication: SKIN WRINKLING
     Dosage: 300 UNITS (300 UNITS, SINGLE CYCLE), SINGLE CYCLE, SINGLE CYCLE
     Dates: start: 20100202, end: 20100202

REACTIONS (2)
  - EYELID PTOSIS [None]
  - OFF LABEL USE [None]
